FAERS Safety Report 18966536 (Version 1)
Quarter: 2021Q1

REPORT INFORMATION
  Report Type: Other
  Country: NP (occurrence: NP)
  Receive Date: 20210304
  Receipt Date: 20210304
  Transmission Date: 20210420
  Serious: Yes (Hospitalization, Other)
  Sender: FDA-Public Use
  Company Number: NP-ROCHE-2778347

PATIENT
  Age: 28 Year
  Sex: Female

DRUGS (7)
  1. SODIUM VALPROATE [Concomitant]
     Active Substance: VALPROATE SODIUM
  2. PROPOFOL. [Concomitant]
     Active Substance: PROPOFOL
  3. OXCARBAZEPINE. [Concomitant]
     Active Substance: OXCARBAZEPINE
  4. CLOBAZAM. [Concomitant]
     Active Substance: CLOBAZAM
  5. MYCOPHENOLATE MOFETIL. [Suspect]
     Active Substance: MYCOPHENOLATE MOFETIL
     Indication: IGA NEPHROPATHY
     Route: 065
  6. LEVETIRACETAM. [Concomitant]
     Active Substance: LEVETIRACETAM
  7. KETAMINE [Concomitant]
     Active Substance: KETAMINE

REACTIONS (4)
  - Status epilepticus [Recovered/Resolved]
  - Urinary tract infection [Recovered/Resolved]
  - Pneumonia [Recovered/Resolved]
  - Posterior reversible encephalopathy syndrome [Recovered/Resolved]
